FAERS Safety Report 22648772 (Version 1)
Quarter: 2023Q2

REPORT INFORMATION
  Report Type: Report from Study
  Country: US (occurrence: None)
  Receive Date: 20230628
  Receipt Date: 20230628
  Transmission Date: 20230722
  Serious: Yes (Death, Hospitalization, Other)
  Sender: FDA-Public Use
  Company Number: 2023A145896

PATIENT
  Age: 14804 Day
  Sex: Female

DRUGS (2)
  1. LYNPARZA [Suspect]
     Active Substance: OLAPARIB
     Indication: Endometrial cancer
     Route: 048
     Dates: start: 202306
  2. LYNPARZA [Suspect]
     Active Substance: OLAPARIB
     Indication: Uterine cancer
     Route: 048
     Dates: start: 202306

REACTIONS (1)
  - Death [Fatal]

NARRATIVE: CASE EVENT DATE: 20230619
